FAERS Safety Report 11893106 (Version 1)
Quarter: 2016Q1

REPORT INFORMATION
  Report Type: Spontaneous
  Country: US (occurrence: US)
  Receive Date: 20160106
  Receipt Date: 20160106
  Transmission Date: 20160526
  Serious: No
  Sender: FDA-Public Use
  Company Number: US-TARO-2015TAR01049

PATIENT
  Age: 71 Year
  Sex: Female
  Weight: 147.39 kg

DRUGS (1)
  1. CLOTRIMAZOLE VAGINAL CREAM USP 1% 7 DAY [Suspect]
     Active Substance: CLOTRIMAZOLE
     Indication: FUNGAL INFECTION
     Dosage: 1 DOSAGE UNITS, 1X/DAY
     Route: 067
     Dates: start: 20151030

REACTIONS (4)
  - Anxiety [Recovered/Resolved]
  - Dizziness [Recovered/Resolved]
  - Tremor [Recovered/Resolved]
  - Blood glucose decreased [Recovered/Resolved]

NARRATIVE: CASE EVENT DATE: 20151101
